FAERS Safety Report 7976761-1 (Version None)
Quarter: 2011Q4

REPORT INFORMATION
  Report Type: 
  Country: None (occurrence: None)
  Receive Date: 20111213
  Receipt Date: 20111108
  Transmission Date: 20120403
  Serious: No
  Sender: FDA-Public Use
  Company Number: US-AMGEN-USASP2011055732

PATIENT
  Sex: Male

DRUGS (3)
  1. ENBREL [Suspect]
     Indication: PSORIASIS
     Dosage: 50 MG, QWK
     Route: 058
     Dates: start: 20040401
  2. CLOBEX                             /00012002/ [Concomitant]
     Indication: PSORIASIS
     Route: 061
  3. VECTICAL [Concomitant]
     Indication: PSORIASIS
     Dosage: 1MMOL

REACTIONS (1)
  - HEPATITIS A VIRUS TEST POSITIVE [None]
